FAERS Safety Report 5582535-1 (Version None)
Quarter: 2007Q4

REPORT INFORMATION
  Report Type: 
  Country: None (occurrence: None)
  Receive Date: 20071130
  Receipt Date: 20070222
  Transmission Date: 20080405
  Serious: Yes (Other)
  Sender: FDA-Public Use
  Company Number: WAES 0702USA04077

PATIENT
  Age: 60 Year
  Sex: Female

DRUGS (14)
  1. FOSAMAX [Suspect]
     Indication: OSTEOPOROSIS
     Dosage: 70 MG/WKY/PO
     Route: 048
     Dates: start: 20060301, end: 20060801
  2. ACTONEL [Suspect]
     Indication: DRUG USE FOR UNKNOWN INDICATION
     Dates: start: 20020101, end: 20060301
  3. AMBIEN [Concomitant]
  4. ATTACAND [Concomitant]
  5. LIPITOR [Concomitant]
  6. LORTAB [Concomitant]
  7. PREVACID [Concomitant]
  8. PROZAC [Concomitant]
  9. THYROXIN [Concomitant]
  10. VALTREX [Concomitant]
  11. ASPIRIN [Concomitant]
  12. INSULIN [Concomitant]
  13. METHOTREXATE [Concomitant]
  14. VITAMINS [Concomitant]

REACTIONS (1)
  - OSTEONECROSIS [None]
